FAERS Safety Report 6501131-2 (Version None)
Quarter: 2009Q4

REPORT INFORMATION
  Report Type: 
  Country: None (occurrence: None)
  Receive Date: 20091216
  Receipt Date: 20090801
  Transmission Date: 20100525
  Serious: No
  Sender: FDA-Public Use
  Company Number: A0800312A

PATIENT
  Sex: Female

DRUGS (1)
  1. COMMIT [Suspect]

REACTIONS (5)
  - DENTAL CARIES [None]
  - MINERAL DEFICIENCY [None]
  - NICOTINE DEPENDENCE [None]
  - TOOTH DISORDER [None]
  - TOOTHACHE [None]
